FAERS Safety Report 23639919 (Version 1)
Quarter: 2024Q1

REPORT INFORMATION
  Report Type: Report from Study
  Country: NL (occurrence: NL)
  Receive Date: 20240316
  Receipt Date: 20240316
  Transmission Date: 20240409
  Serious: Yes (Hospitalization, Other)
  Sender: FDA-Public Use
  Company Number: NL-UNITED THERAPEUTICS-UNT-2024-003069

PATIENT

DRUGS (2)
  1. TREPROSTINIL SODIUM [Suspect]
     Active Substance: TREPROSTINIL SODIUM
     Indication: Pulmonary arterial hypertension
     Dosage: UNK, CONTINUING
     Route: 041
     Dates: start: 20240125, end: 202401
  2. TREPROSTINIL SODIUM [Suspect]
     Active Substance: TREPROSTINIL SODIUM
     Dosage: UNK, CONTINUING (RESTARTED DOSE)
     Route: 041
     Dates: start: 202401

REACTIONS (7)
  - Device leakage [Recovered/Resolved]
  - Loss of consciousness [Unknown]
  - Shock [Unknown]
  - Vomiting [Unknown]
  - Diarrhoea [Unknown]
  - Blood pressure decreased [Unknown]
  - Overdose [Unknown]

NARRATIVE: CASE EVENT DATE: 20240101
